FAERS Safety Report 5297906-0 (Version None)
Quarter: 2007Q2

REPORT INFORMATION
  Report Type: 
  Country: None (occurrence: None)
  Receive Date: 20070416
  Receipt Date: 20070412
  Transmission Date: 20071010
  Serious: Yes (Death, Disabling)
  Sender: FDA-Public Use
  Company Number: CA-GLAXOSMITHKLINE-A0600542A

PATIENT
  Age: 73 Year
  Sex: Male
  Weight: 82.5 kg

DRUGS (8)
  1. DUTASTERIDE [Suspect]
     Indication: PROSTATE CANCER
     Dosage: .5MG PER DAY
     Route: 048
     Dates: start: 20060214, end: 20060220
  2. KETOCONAZOLE [Suspect]
     Indication: PROSTATE CANCER
     Dosage: 400MG THREE TIMES PER DAY
     Route: 048
     Dates: start: 20060214, end: 20060303
  3. HYDROCORTISONE [Suspect]
     Indication: PROSTATE CANCER
     Route: 048
     Dates: start: 20060214, end: 20060220
  4. PAXIL [Concomitant]
     Indication: DEPRESSION
     Route: 048
  5. TERAZOSIN HCL [Concomitant]
     Indication: HYPERTENSION
     Route: 048
  6. ZOMETA [Concomitant]
     Dosage: 4MG SEE DOSAGE TEXT
     Route: 048
     Dates: start: 20051114
  7. LEUPROLIDE ACETATE [Concomitant]
     Indication: PROSTATE CANCER
     Dosage: 22.5MG SEE DOSAGE TEXT
     Route: 030
     Dates: start: 20050801
  8. ANDROCUR [Concomitant]
     Indication: PROSTATE CANCER
     Route: 048
     Dates: start: 20050801

REACTIONS (4)
  - CARDIAC FAILURE CONGESTIVE [None]
  - COUGH [None]
  - OEDEMA PERIPHERAL [None]
  - PULMONARY OEDEMA [None]
